FAERS Safety Report 7798862-3 (Version None)
Quarter: 2011Q4

REPORT INFORMATION
  Report Type: 
  Country: None (occurrence: None)
  Receive Date: 20111006
  Receipt Date: 20110726
  Transmission Date: 20120403
  Serious: Yes (Death, Other)
  Sender: FDA-Public Use
  Company Number: FR-AMGEN-FRASP2011051286

PATIENT
  Sex: Female

DRUGS (4)
  1. NEULASTA [Suspect]
     Indication: CHEMOTHERAPY
     Dosage: UNK
     Dates: start: 20110712, end: 20110712
  2. CARBOPLATIN [Concomitant]
     Dosage: UNK
     Dates: start: 20110712
  3. ARANESP [Suspect]
     Indication: PRODUCT USED FOR UNKNOWN INDICATION
     Dosage: UNK
     Dates: start: 20110712, end: 20110712
  4. VEPESID [Concomitant]
     Dosage: UNK
     Dates: start: 20110712, end: 20110715

REACTIONS (3)
  - HAEMOGLOBIN DECREASED [None]
  - DEATH [None]
  - NEUTROPHIL COUNT INCREASED [None]
